FAERS Safety Report 8266271-9 (Version None)
Quarter: 2012Q2

REPORT INFORMATION
  Report Type: 
  Country: None (occurrence: None)
  Receive Date: 20120406
  Receipt Date: 20120322
  Transmission Date: 20120825
  Serious: Yes (Other)
  Sender: FDA-Public Use
  Company Number: PHHY2012JP000962

PATIENT
  Age: 10 Year
  Sex: Male

DRUGS (3)
  1. PREDNISOLONE [Concomitant]
     Dosage: 1.22 MG/KG, DAY
  2. NEORAL [Suspect]
     Indication: NEPHROTIC SYNDROME
     Dosage: 100 MG, QD
     Route: 048
     Dates: start: 20080508, end: 20080521
  3. PREDNISOLONE [Concomitant]
     Dosage: UNK UKN, UNK

REACTIONS (6)
  - VOMITING [None]
  - EPILEPSY [None]
  - NAUSEA [None]
  - POSTERIOR REVERSIBLE ENCEPHALOPATHY SYNDROME [None]
  - HEADACHE [None]
  - CONVULSION [None]
